FAERS Safety Report 9881259 (Version 2)
Quarter: 2014Q1

REPORT INFORMATION
  Report Type: Spontaneous
  Country: FR (occurrence: FR)
  Receive Date: 20140207
  Receipt Date: 20140314
  Transmission Date: 20141002
  Serious: Yes (Other)
  Sender: FDA-Public Use
  Company Number: FR-ABBVIE-14P-056-1198327-00

PATIENT
  Age: 8 Year
  Sex: Female
  Weight: 24 kg

DRUGS (2)
  1. ENATONE [Suspect]
     Indication: PRECOCIOUS PUBERTY
     Dates: start: 20130923
  2. ENATONE [Suspect]
     Dosage: REGIMEN #2
     Dates: start: 20131221

REACTIONS (2)
  - Injection site haematoma [Not Recovered/Not Resolved]
  - Injection site reaction [Not Recovered/Not Resolved]
